FAERS Safety Report 7242857-5 (Version None)
Quarter: 2011Q1

REPORT INFORMATION
  Report Type: 
  Country: None (occurrence: None)
  Receive Date: 20110125
  Receipt Date: 20110120
  Transmission Date: 20110831
  Serious: Yes (Other)
  Sender: FDA-Public Use
  Company Number: GB-PFIZER INC-2010152820

PATIENT
  Age: 40 Year
  Sex: Female
  Weight: 78.5 kg

DRUGS (2)
  1. CHAMPIX [Suspect]
     Indication: SMOKING CESSATION THERAPY
     Dosage: 1 MG, 2X/DAY
     Route: 048
     Dates: start: 20101011, end: 20101116
  2. SALBUTAMOL [Concomitant]
     Indication: ASTHMA
     Dosage: 1 TO 2 X 100MCG PUFFS
     Route: 055
     Dates: start: 20031201

REACTIONS (3)
  - PALPITATIONS [None]
  - HYPERVENTILATION [None]
  - PANIC ATTACK [None]
